FAERS Safety Report 4497938-6 (Version None)
Quarter: 2004Q4

REPORT INFORMATION
  Report Type: 
  Country: None (occurrence: None)
  Receive Date: 20041104
  Receipt Date: 20041022
  Transmission Date: 20050328
  Serious: Yes (Other)
  Sender: FDA-Public Use
  Company Number: 2004079984

PATIENT
  Age: 75 Year
  Sex: Male
  Weight: 75 kg

DRUGS (1)
  1. VIAGRA [Suspect]
     Indication: ERECTILE DYSFUNCTION
     Dosage: 100 MG (100 MG, 1 IN 1 WK), ORAL
     Route: 048
     Dates: start: 20020101, end: 20040928

REACTIONS (4)
  - BREAST PAIN [None]
  - GYNAECOMASTIA [None]
  - PROSTATE CANCER [None]
  - RASH [None]
